FAERS Safety Report 8616588-0 (Version None)
Quarter: 2012Q3

REPORT INFORMATION
  Report Type: 
  Country: None (occurrence: None)
  Receive Date: 20120823
  Receipt Date: 20120809
  Transmission Date: 20120928
  Serious: Yes (Other)
  Sender: FDA-Public Use
  Company Number: DE-TEVA-353046GER

PATIENT
  Age: 54 Year
  Sex: Male
  Weight: 80 kg

DRUGS (4)
  1. ENBREL [Suspect]
     Indication: POLYARTHRITIS
     Route: 058
     Dates: start: 20010305
  2. PREDNISONE TAB [Concomitant]
  3. METHOTREXATE SODIUM [Suspect]
     Dates: start: 19980101
  4. DICLOFENAC SODIUM [Concomitant]
     Dosage: 150 MILLIGRAM DAILY;

REACTIONS (1)
  - CHRONIC MYELOID LEUKAEMIA [None]
